FAERS Safety Report 21648162 (Version 2)
Quarter: 2025Q2

REPORT INFORMATION
  Report Type: Spontaneous
  Country: PT (occurrence: PT)
  Receive Date: 20221128
  Receipt Date: 20250530
  Transmission Date: 20250717
  Serious: Yes (Hospitalization, Other)
  Sender: AUROBINDO
  Company Number: PT-ATRAL-20220311

PATIENT
  Age: 62 Year
  Sex: Female

DRUGS (1)
  1. AMOXICILLIN\CLAVULANIC ACID [Suspect]
     Active Substance: AMOXICILLIN\CLAVULANIC ACID
     Indication: Pneumonia aspiration
     Route: 065

REACTIONS (12)
  - Drug-induced liver injury [Recovering/Resolving]
  - Cell death [Recovering/Resolving]
  - Cholestasis [Recovering/Resolving]
  - Hyperbilirubinaemia [Recovering/Resolving]
  - Antinuclear antibody increased [Recovering/Resolving]
  - Jaundice [Recovering/Resolving]
  - Choluria [Recovering/Resolving]
  - Deficiency of bile secretion [Recovering/Resolving]
  - Pruritus [Recovering/Resolving]
  - Cholangitis acute [Recovering/Resolving]
  - Eosinophilia [Recovering/Resolving]
  - Biliary tract disorder [Recovering/Resolving]
